FAERS Safety Report 4336165-X (Version None)
Quarter: 2004Q1

REPORT INFORMATION
  Report Type: 
  Country: None (occurrence: None)
  Receive Date: 20040329
  Receipt Date: 20040107
  Transmission Date: 20041129
  Serious: No
  Sender: FDA-Public Use
  Company Number: USA040156018

PATIENT
  Age: 6 Year
  Sex: Female
  Weight: 19 kg

DRUGS (1)
  1. STRATTERA [Suspect]
     Indication: ATTENTION DEFICIT/HYPERACTIVITY DISORDER
     Dosage: 12.5 MG/2 DAY
     Dates: start: 20031101

REACTIONS (2)
  - RETCHING [None]
  - SOMNOLENCE [None]
